FAERS Safety Report 23145084 (Version 1)
Quarter: 2023Q4

REPORT INFORMATION
  Report Type: Spontaneous
  Country: US (occurrence: US)
  Receive Date: 20231103
  Receipt Date: 20231103
  Transmission Date: 20240109
  Serious: Yes (Death, Other)
  Sender: FDA-Public Use
  Company Number: US-AMGEN-USASP2023193345

PATIENT

DRUGS (12)
  1. RITUXIMAB [Suspect]
     Active Substance: RITUXIMAB
     Indication: Neurosarcoidosis
     Dosage: UNK
     Route: 065
  2. RITUXIMAB [Suspect]
     Active Substance: RITUXIMAB
     Indication: Hydrocephalus
  3. INFLIXIMAB [Suspect]
     Active Substance: INFLIXIMAB
     Indication: Neurosarcoidosis
     Dosage: UNK
     Route: 065
  4. INFLIXIMAB [Suspect]
     Active Substance: INFLIXIMAB
     Indication: Hydrocephalus
  5. METHYLPREDNISOLONE [Concomitant]
     Active Substance: METHYLPREDNISOLONE
     Indication: Hydrocephalus
     Dosage: HIGH-DOSE
     Route: 042
  6. METHYLPREDNISOLONE [Concomitant]
     Active Substance: METHYLPREDNISOLONE
     Indication: Neurosarcoidosis
     Dosage: UNK
     Route: 048
  7. PREDNISONE [Concomitant]
     Active Substance: PREDNISONE
     Indication: Hydrocephalus
     Dosage: HIGH-DOSE
     Route: 048
  8. PREDNISONE [Concomitant]
     Active Substance: PREDNISONE
     Indication: Neurosarcoidosis
  9. METHOTREXATE [Concomitant]
     Active Substance: METHOTREXATE
     Indication: Hydrocephalus
  10. METHOTREXATE [Concomitant]
     Active Substance: METHOTREXATE
     Indication: Neurosarcoidosis
  11. AZATHIOPRINE [Concomitant]
     Active Substance: AZATHIOPRINE
     Indication: Hydrocephalus
  12. AZATHIOPRINE [Concomitant]
     Active Substance: AZATHIOPRINE
     Indication: Neurosarcoidosis

REACTIONS (12)
  - Procedural complication [Fatal]
  - Shunt infection [Unknown]
  - Hydrocephalus [Unknown]
  - Meningitis [Unknown]
  - Pachymeningitis [Unknown]
  - CNS ventriculitis [Unknown]
  - Abdominal hernia [Unknown]
  - Drug ineffective for unapproved indication [Unknown]
  - Shunt malfunction [Unknown]
  - Drug effective for unapproved indication [Unknown]
  - Adverse event [Unknown]
  - Off label use [Unknown]
